FAERS Safety Report 5318205-4 (Version None)
Quarter: 2007Q1

REPORT INFORMATION
  Report Type: 
  Country: None (occurrence: None)
  Receive Date: 20070201
  Receipt Date: 20060125
  Transmission Date: 20070707
  Serious: Yes (Other)
  Sender: FDA-Public Use
  Company Number: WAES 0601USA03044

PATIENT
  Sex: Female

DRUGS (1)
  1. PRIMAXIN [Suspect]
     Dosage: IV
     Route: 042
     Dates: end: 20051101

REACTIONS (1)
  - CONVULSION [None]
